FAERS Safety Report 6760487-6 (Version None)
Quarter: 2010Q2

REPORT INFORMATION
  Report Type: 
  Country: None (occurrence: None)
  Receive Date: 20100602
  Receipt Date: 20090518
  Transmission Date: 20101027
  Serious: Yes (Other)
  Sender: FDA-Public Use
  Company Number: WAES 0905USA02300

PATIENT
  Age: 71 Year
  Sex: Male
  Weight: 95.709 kg

DRUGS (5)
  1. EMEND [Suspect]
     Indication: PROPHYLAXIS
     Dosage: 125 MG/1X/PO ; 125 MG/1X/PO
     Route: 048
     Dates: start: 20090407, end: 20090407
  2. EMEND [Suspect]
     Indication: PROPHYLAXIS
     Dosage: 125 MG/1X/PO ; 125 MG/1X/PO
     Route: 048
     Dates: start: 20090518, end: 20090518
  3. EMEND [Suspect]
     Indication: PROPHYLAXIS OF NAUSEA AND VOMITING
     Dosage: 80 MG/DAILY/PO ; 80 MG/DAILY/PO
     Route: 048
     Dates: start: 20090408, end: 20090409
  4. EMEND [Suspect]
     Indication: PROPHYLAXIS OF NAUSEA AND VOMITING
     Dosage: 80 MG/DAILY/PO ; 80 MG/DAILY/PO
     Route: 048
     Dates: start: 20090519, end: 20090520
  5. CYCLOPHOSPHAMIDE (+) DOXORUBICIN [Concomitant]

REACTIONS (1)
  - HICCUPS [None]
